FAERS Safety Report 7058571-5 (Version None)
Quarter: 2010Q4

REPORT INFORMATION
  Report Type: 
  Country: None (occurrence: None)
  Receive Date: 20101022
  Receipt Date: 20101013
  Transmission Date: 20110411
  Serious: Yes (Other)
  Sender: FDA-Public Use
  Company Number: A0876804A

PATIENT
  Age: 8 Year
  Sex: Male
  Weight: 27 kg

DRUGS (4)
  1. LAMICTAL [Suspect]
     Indication: EPILEPSY
     Route: 048
     Dates: start: 20100722, end: 20100811
  2. KLONOPIN [Concomitant]
     Indication: EPILEPSY
     Dosage: .5MG AT NIGHT
     Route: 048
     Dates: start: 20100721
  3. KEPPRA [Concomitant]
     Indication: EPILEPSY
     Dosage: 500MG TWICE PER DAY
     Route: 048
     Dates: start: 20070101
  4. RITALIN TIME RELEASED [Concomitant]
     Indication: ATTENTION DEFICIT/HYPERACTIVITY DISORDER
     Dosage: 10MG IN THE MORNING
     Route: 048
     Dates: start: 20090201

REACTIONS (16)
  - ALANINE AMINOTRANSFERASE INCREASED [None]
  - ASPARTATE AMINOTRANSFERASE INCREASED [None]
  - BLOOD URIC ACID DECREASED [None]
  - BODY TEMPERATURE FLUCTUATION [None]
  - BURNING SENSATION [None]
  - CLONUS [None]
  - CRYING [None]
  - FATIGUE [None]
  - FEELING HOT [None]
  - MOVEMENT DISORDER [None]
  - PALLOR [None]
  - PYREXIA [None]
  - RASH [None]
  - SCREAMING [None]
  - VOMITING [None]
  - WEIGHT INCREASED [None]
